FAERS Safety Report 23914003 (Version 1)
Quarter: 2024Q2

REPORT INFORMATION
  Report Type: Spontaneous
  Country: US (occurrence: None)
  Receive Date: 20240529
  Receipt Date: 20240529
  Transmission Date: 20240716
  Serious: Yes (Other)
  Sender: FDA-Public Use
  Company Number: US-ROCHE-3570354

PATIENT
  Age: 56 Year
  Sex: Female

DRUGS (5)
  1. TNKASE [Suspect]
     Active Substance: TENECTEPLASE
     Indication: Ischaemic stroke
     Route: 065
  2. TNKASE [Suspect]
     Active Substance: TENECTEPLASE
  3. BENADRYL [Concomitant]
     Active Substance: DIPHENHYDRAMINE HYDROCHLORIDE
     Dosage: AT 21:48
  4. FAMOTIDINE [Concomitant]
     Active Substance: FAMOTIDINE
     Dosage: AT 21:50
     Route: 042
  5. SOLU-MEDROL [Concomitant]
     Active Substance: METHYLPREDNISOLONE SODIUM SUCCINATE
     Dosage: AT 21:51

REACTIONS (2)
  - Angioedema [Unknown]
  - Off label use [Unknown]
